FAERS Safety Report 4521694-6 (Version None)
Quarter: 2004Q4

REPORT INFORMATION
  Report Type: 
  Country: None (occurrence: None)
  Receive Date: 20041206
  Receipt Date: 20041119
  Transmission Date: 20050328
  Serious: Yes (Other)
  Sender: FDA-Public Use
  Company Number: 2004-BP-12166RO

PATIENT
  Age: 60 Year
  Sex: Male

DRUGS (3)
  1. ALBUTEROL [Suspect]
     Indication: ASTHMA
     Dosage: 5 MG EVERY 4 HOURS FOR 5 DOSES (5 MG, 1 IN 4 HR)
  2. AMINOPHYLLINE ORAL SOLUTION USP, 105MG/5ML (AMINOPHYLLINE) [Suspect]
     Indication: ASTHMA
     Dosage: PO
     Route: 048
  3. CORTICOSTEROIDS (CORTICOSTEROIDS) [Suspect]
     Indication: ASTHMA
     Dosage: HIGH DOSES

REACTIONS (2)
  - ACUTE MYOCARDIAL INFARCTION [None]
  - ELECTROCARDIOGRAM ST SEGMENT ELEVATION [None]
